FAERS Safety Report 10909301 (Version 1)
Quarter: 2015Q1

REPORT INFORMATION
  Report Type: Spontaneous
  Country: US (occurrence: US)
  Receive Date: 20150312
  Receipt Date: 20150312
  Transmission Date: 20150721
  Serious: No
  Sender: FDA-Public Use
  Company Number: US-SA-2014SA038975

PATIENT
  Sex: Male

DRUGS (4)
  1. ALL OTHER THERAPEUTIC PRODUCTS [Concomitant]
     Active Substance: UNSPECIFIED INGREDIENT
     Indication: CEREBROVASCULAR ACCIDENT
  2. MINERALS NOS/VITAMINS NOS [Concomitant]
     Route: 065
  3. NASACORT ALLERGY 24HR [Suspect]
     Active Substance: TRIAMCINOLONE ACETONIDE
     Indication: HYPERSENSITIVITY
     Route: 065
     Dates: start: 20140323, end: 20140325
  4. ASPIRIN ^BAYER^ [Concomitant]
     Active Substance: ASPIRIN
     Route: 065

REACTIONS (1)
  - Drug effect incomplete [Unknown]
